FAERS Safety Report 4859837-7 (Version None)
Quarter: 2005Q4

REPORT INFORMATION
  Report Type: 
  Country: None (occurrence: None)
  Receive Date: 20051219
  Receipt Date: 20051208
  Transmission Date: 20060501
  Serious: Yes (Hospitalization, Other)
  Sender: FDA-Public Use
  Company Number: PHNU2005DE04056

PATIENT
  Sex: Female

DRUGS (3)
  1. CLOZARIL [Suspect]
     Dosage: UP TO 500MG/DAY
     Route: 048
     Dates: end: 20051115
  2. CLOZARIL [Suspect]
     Dosage: 200MG/DAY
     Route: 048
  3. ABILIFY [Suspect]
     Dosage: 10 MG, QD
     Route: 065
     Dates: start: 20050622, end: 20051116

REACTIONS (4)
  - DRUG INTERACTION [None]
  - DRUG LEVEL INCREASED [None]
  - GENERAL PHYSICAL CONDITION ABNORMAL [None]
  - JAUNDICE CHOLESTATIC [None]
